FAERS Safety Report 6346504-6 (Version None)
Quarter: 2009Q3

REPORT INFORMATION
  Report Type: 
  Country: None (occurrence: None)
  Receive Date: 20090901
  Receipt Date: 20081125
  Transmission Date: 20100115
  Serious: Yes (Hospitalization)
  Sender: FDA-Public Use
  Company Number: 2008BI032224

PATIENT
  Age: 28 Year
  Sex: Male

DRUGS (5)
  1. TYSABRI [Suspect]
     Indication: MULTIPLE SCLEROSIS
     Dosage: 300 MG;QM.IV
     Route: 042
     Dates: start: 20080917
  2. AVONEX [Concomitant]
  3. COPAXONE [Concomitant]
  4. NOVANTRONE [Concomitant]
  5. IMMUNE GLOBULIN INTRAVENOUS (HUMAN) [Concomitant]

REACTIONS (4)
  - COUGH [None]
  - CYSTITIS [None]
  - DECUBITUS ULCER [None]
  - MUSCLE SPASMS [None]
